FAERS Safety Report 18642321 (Version 1)
Quarter: 2020Q4

REPORT INFORMATION
  Report Type: Spontaneous
  Country: US (occurrence: US)
  Receive Date: 20201218
  Receipt Date: 20201218
  Transmission Date: 20210114
  Serious: Yes (Other)
  Sender: FDA-Public Use
  Company Number: None

PATIENT
  Age: 54 Year
  Sex: Female
  Weight: 79.4 kg

DRUGS (1)
  1. FULVESTRANT. [Suspect]
     Active Substance: FULVESTRANT
     Indication: HORMONE RECEPTOR POSITIVE BREAST CANCER
     Dosage: ?          OTHER FREQUENCY:EVERY 30 DAYS;?
     Route: 030
     Dates: start: 20161215, end: 20201211

REACTIONS (4)
  - Throat tightness [None]
  - Cough [None]
  - Hypersensitivity [None]
  - Feeling abnormal [None]

NARRATIVE: CASE EVENT DATE: 20201211
